FAERS Safety Report 4751065-9 (Version None)
Quarter: 2005Q3

REPORT INFORMATION
  Report Type: 
  Country: None (occurrence: None)
  Receive Date: 20050822
  Receipt Date: 20050808
  Transmission Date: 20060218
  Serious: Yes (Other)
  Sender: FDA-Public Use
  Company Number: HQWYE839310AUG05

PATIENT
  Sex: Female

DRUGS (1)
  1. RHINADVIL (IBUPROFEN/PSEUDOEPHEDRINE HYDROCHLORIDE, TABLET) [Suspect]
     Dosage: ^ONE INTAKE^, ORAL
     Route: 048
     Dates: start: 20050301

REACTIONS (1)
  - HYPERSENSITIVITY [None]
